FAERS Safety Report 4713184-2 (Version None)
Quarter: 2005Q3

REPORT INFORMATION
  Report Type: 
  Country: None (occurrence: None)
  Receive Date: 20050701
  Receipt Date: 20040901
  Transmission Date: 20060218
  Serious: Yes (Hospitalization)
  Sender: FDA-Public Use
  Company Number: USA-2002-000960

PATIENT
  Age: 20 Year
  Sex: Female

DRUGS (1)
  1. YASMIN [Suspect]
     Indication: CONTRACEPTION
     Dosage: 1 , 1X/DAY, ORAL
     Route: 048
     Dates: start: 20020125, end: 20020709

REACTIONS (1)
  - CEREBROVASCULAR ACCIDENT [None]
